FAERS Safety Report 8214869-6 (Version None)
Quarter: 2012Q1

REPORT INFORMATION
  Report Type: 
  Country: None (occurrence: None)
  Receive Date: 20120316
  Receipt Date: 20120307
  Transmission Date: 20120608
  Serious: Yes (Hospitalization, Other)
  Sender: FDA-Public Use
  Company Number: US-JNJFOC-20120305149

PATIENT
  Sex: Female

DRUGS (1)
  1. REMICADE [Suspect]
     Indication: RHEUMATOID ARTHRITIS
     Route: 042

REACTIONS (5)
  - NASOPHARYNGITIS [None]
  - DISCOMFORT [None]
  - BACK DISORDER [None]
  - PRECANCEROUS CELLS PRESENT [None]
  - DRUG INEFFECTIVE [None]
